FAERS Safety Report 4821038-6 (Version None)
Quarter: 2005Q4

REPORT INFORMATION
  Report Type: 
  Country: None (occurrence: None)
  Receive Date: 20051104
  Receipt Date: 20050517
  Transmission Date: 20060501
  Serious: Yes (Death, Hospitalization)
  Sender: FDA-Public Use
  Company Number: GBWYE670217MAY05

PATIENT
  Age: 62 Year
  Sex: Male

DRUGS (3)
  1. ENBREL [Suspect]
     Indication: RHEUMATOID ARTHRITIS
     Route: 058
     Dates: start: 20040706, end: 20050127
  2. DICLOFENAC [Concomitant]
     Indication: RHEUMATOID ARTHRITIS
     Route: 048
  3. CO-DYDRAMOL [Concomitant]
     Indication: PAIN
     Dosage: TWO AS REQUIRED
     Route: 048

REACTIONS (4)
  - BRONCHOPNEUMONIA [None]
  - PNEUMONIA HAEMOPHILUS [None]
  - PULMONARY FIBROSIS [None]
  - THERAPY NON-RESPONDER [None]
